FAERS Safety Report 9921427 (Version 1)
Quarter: 2014Q1

REPORT INFORMATION
  Report Type: Spontaneous
  Country: US (occurrence: None)
  Receive Date: 20140221
  Receipt Date: 20140221
  Transmission Date: 20141002
  Serious: Yes (Other)
  Sender: FDA-Public Use
  Company Number: None

PATIENT
  Age: 59 Year
  Sex: Female

DRUGS (1)
  1. QSYMIA [Suspect]
     Dosage: EVERY MORNING
     Route: 048
     Dates: start: 20140215, end: 20140218

REACTIONS (2)
  - Tinnitus [None]
  - Paraesthesia [None]
